FAERS Safety Report 15440614 (Version 1)
Quarter: 2018Q3

REPORT INFORMATION
  Report Type: Spontaneous
  Country: US (occurrence: US)
  Receive Date: 20180928
  Receipt Date: 20180928
  Transmission Date: 20181010
  Serious: No
  Sender: FDA-Public Use
  Company Number: US-NOVOPROD-606741

PATIENT
  Sex: Male

DRUGS (1)
  1. OZEMPIC [Suspect]
     Active Substance: SEMAGLUTIDE
     Indication: PRODUCT USED FOR UNKNOWN INDICATION
     Dosage: DAILY
     Route: 058
     Dates: start: 2018, end: 2018

REACTIONS (5)
  - Malaise [Unknown]
  - Diarrhoea [Unknown]
  - Vomiting [Unknown]
  - Nausea [Unknown]
  - Inappropriate schedule of drug administration [Unknown]

NARRATIVE: CASE EVENT DATE: 2018
